FAERS Safety Report 13248119 (Version 2)
Quarter: 2017Q1

REPORT INFORMATION
  Report Type: Spontaneous
  Country: GB (occurrence: GB)
  Receive Date: 20170217
  Receipt Date: 20170222
  Transmission Date: 20170428
  Serious: Yes (Other)
  Sender: FDA-Public Use
  Company Number: GB-APOTEX-2017AP007125

PATIENT
  Sex: Female

DRUGS (3)
  1. SEROXAT [Suspect]
     Active Substance: PAROXETINE HYDROCHLORIDE
     Indication: DEPRESSION
     Dosage: 20 MG, QD
     Route: 065
  2. SEROXAT [Suspect]
     Active Substance: PAROXETINE HYDROCHLORIDE
     Dosage: 10 MG, UNK
     Route: 065
     Dates: start: 20161123
  3. SEROXAT [Suspect]
     Active Substance: PAROXETINE HYDROCHLORIDE
     Dosage: 5 MG, UNK
     Route: 065

REACTIONS (24)
  - Dissociation [Unknown]
  - Vomiting [Unknown]
  - Pyrexia [Unknown]
  - Thinking abnormal [Unknown]
  - Hypothyroidism [Unknown]
  - Abdominal pain upper [Unknown]
  - Nasopharyngitis [Unknown]
  - Movement disorder [Unknown]
  - Dizziness [Unknown]
  - Pruritus [Unknown]
  - Feeling abnormal [Unknown]
  - Performance status decreased [Unknown]
  - Nausea [Unknown]
  - Electric shock [Unknown]
  - Negative thoughts [Unknown]
  - Fear [Unknown]
  - Hypoaesthesia [Unknown]
  - Gastroenteritis viral [Unknown]
  - Immune system disorder [Unknown]
  - Hepatic pain [Unknown]
  - Influenza like illness [Unknown]
  - Impaired work ability [Unknown]
  - Poisoning [Unknown]
  - Vertigo [Unknown]

NARRATIVE: CASE EVENT DATE: 2016
